FAERS Safety Report 5021387-5 (Version None)
Quarter: 2006Q2

REPORT INFORMATION
  Report Type: 
  Country: None (occurrence: None)
  Receive Date: 20060605
  Receipt Date: 20060522
  Transmission Date: 20061013
  Serious: Yes (Hospitalization, Other)
  Sender: FDA-Public Use
  Company Number: 2006057361

PATIENT
  Age: 60 Year
  Sex: Male
  Weight: 91.6266 kg

DRUGS (2)
  1. CELEBREX [Suspect]
     Indication: RHEUMATOID ARTHRITIS
  2. INSULIN [Concomitant]

REACTIONS (9)
  - BACK INJURY [None]
  - CEREBROVASCULAR ACCIDENT [None]
  - FALL [None]
  - HYPOAESTHESIA FACIAL [None]
  - LIMB INJURY [None]
  - LOCAL SWELLING [None]
  - NECK INJURY [None]
  - NECK PAIN [None]
  - SECONDARY SYPHILIS [None]
